FAERS Safety Report 6202220-2 (Version None)
Quarter: 2009Q2

REPORT INFORMATION
  Report Type: 
  Country: None (occurrence: None)
  Receive Date: 20090526
  Receipt Date: 20090513
  Transmission Date: 20091009
  Serious: Yes (Hospitalization, Other)
  Sender: FDA-Public Use
  Company Number: US-ROCHE-620333

PATIENT
  Sex: Male
  Weight: 104.3 kg

DRUGS (12)
  1. PEG-INTERFERON A-2A (RO 25-8310) [Suspect]
     Indication: HEPATITIS C
     Dosage: FORM: PRE FILLED SYRINGE.
     Route: 058
     Dates: start: 20090304, end: 20090310
  2. PEG-INTERFERON A-2A (RO 25-8310) [Suspect]
     Route: 058
  3. RIBAVIRIN [Suspect]
     Indication: HEPATITIS C
     Route: 048
     Dates: start: 20090304, end: 20090310
  4. RIBAVIRIN [Suspect]
     Dosage: DIVIDED DOSES
     Route: 048
  5. INSULIN [Concomitant]
  6. HCT GAMMA 25 [Concomitant]
  7. TRAZODONE HCL [Concomitant]
  8. TRAZODONE HCL [Concomitant]
  9. OMEPRAZOLE [Concomitant]
  10. AMLODIPINE [Concomitant]
  11. METFORMIN HCL [Concomitant]
  12. CITALOPRAM HYDROBROMIDE [Concomitant]

REACTIONS (10)
  - ANAEMIA [None]
  - CHILLS [None]
  - DIARRHOEA [None]
  - EPISTAXIS [None]
  - HAEMATEMESIS [None]
  - INFLUENZA LIKE ILLNESS [None]
  - INSOMNIA [None]
  - NAUSEA [None]
  - RENAL FAILURE [None]
  - VOMITING [None]
